FAERS Safety Report 23785318 (Version 1)
Quarter: 2024Q2

REPORT INFORMATION
  Report Type: Spontaneous
  Country: CA (occurrence: CA)
  Receive Date: 20240425
  Receipt Date: 20240425
  Transmission Date: 20240716
  Serious: Yes (Other)
  Sender: FDA-Public Use
  Company Number: CA-TEVA-VS-3189390

PATIENT
  Age: 34 Year
  Sex: Male

DRUGS (2)
  1. PREDNISONE ACETATE [Suspect]
     Active Substance: PREDNISONE ACETATE
     Indication: Product used for unknown indication
     Route: 065
  2. MESALAMINE [Suspect]
     Active Substance: MESALAMINE
     Indication: Product used for unknown indication
     Route: 054

REACTIONS (15)
  - Adhesion [Unknown]
  - Haemoglobin abnormal [Unknown]
  - Serum ferritin decreased [Unknown]
  - Drug ineffective [Unknown]
  - Drug ineffective [Unknown]
  - Drug ineffective [Unknown]
  - Anal fistula [Unknown]
  - Colitis [Unknown]
  - Enterovesical fistula [Unknown]
  - Hypochromic anaemia [Unknown]
  - Inflammation [Unknown]
  - Polyp [Unknown]
  - Terminal ileitis [Unknown]
  - Ulcer [Unknown]
  - Faecal calprotectin increased [Unknown]
